FAERS Safety Report 10593865 (Version 4)
Quarter: 2014Q4

REPORT INFORMATION
  Report Type: Spontaneous
  Country: JP (occurrence: JP)
  Receive Date: 20141119
  Receipt Date: 20141222
  Transmission Date: 20150529
  Serious: Yes (Life-Threatening, Other)
  Sender: FDA-Public Use
  Company Number: JP-CELGENE-JPN-2014111632

PATIENT
  Age: 72 Year
  Sex: Male

DRUGS (17)
  1. WARFARIN [Concomitant]
     Active Substance: WARFARIN
     Indication: VENOUS THROMBOSIS
     Route: 048
     Dates: start: 20131220, end: 20140227
  2. LYRICA [Concomitant]
     Active Substance: PREGABALIN
     Indication: NEURALGIA
     Dosage: 2 TABLET
     Route: 048
     Dates: start: 20131220, end: 20140227
  3. REVLIMID [Suspect]
     Active Substance: LENALIDOMIDE
     Indication: PLASMA CELL MYELOMA
     Route: 048
     Dates: start: 20140131, end: 20140227
  4. REBAMIPIDE [Concomitant]
     Active Substance: REBAMIPIDE
     Indication: GASTRITIS
     Route: 048
     Dates: start: 20131220, end: 20140227
  5. ASPARA-CA [Concomitant]
     Active Substance: CALCIUM ASPARTATE
     Indication: HYPOCALCAEMIA
     Dosage: 300 MILLIGRAM
     Route: 048
     Dates: start: 20131220, end: 20140227
  6. ALSIODOL [Concomitant]
     Indication: HYPOCALCAEMIA
     Dosage: 5 MILLIGRAM
     Route: 048
     Dates: start: 20131220, end: 20140227
  7. ACICLOVIN [Concomitant]
     Indication: HYPERTENSION
     Dosage: 15 MILLIGRAM
     Route: 048
     Dates: start: 20131220, end: 20140227
  8. AMLODIPINE [Concomitant]
     Active Substance: AMLODIPINE BESYLATE
     Indication: HYPERTENSION
     Dosage: 75 MILLIGRAM
     Route: 048
     Dates: start: 20131220, end: 20140227
  9. REVLIMID [Suspect]
     Active Substance: LENALIDOMIDE
     Dosage: 120 MILLIGRAM
     Route: 048
     Dates: start: 20140502
  10. TRAMCET [Concomitant]
     Active Substance: ACETAMINOPHEN\TRAMADOL
     Indication: PAIN
     Dosage: 20 MILLIGRAM
     Route: 048
     Dates: start: 20131217, end: 20140227
  11. NAIXAN [Concomitant]
     Active Substance: NAPROXEN SODIUM
     Indication: BACK PAIN
     Dosage: 1.65 MILLIGRAM
     Route: 048
     Dates: start: 20131217, end: 20140227
  12. SULFAMETHOXAZOLE AND TRIMETHOPRIM [Concomitant]
     Active Substance: SULFAMETHOXAZOLE\TRIMETHOPRIM
     Indication: PNEUMONIA
     Dosage: 2400 MILLIGRAM
     Route: 048
     Dates: start: 20131224, end: 20140227
  13. TSUMURA DAIOKANZOTO EXTRACT GRANULES [Concomitant]
     Indication: CONSTIPATION
     Dosage: .5 MICROGRAM
     Route: 048
     Dates: start: 20131220, end: 20140227
  14. LENADEX [Suspect]
     Active Substance: DEXAMETHASONE ACETATE
     Route: 048
     Dates: start: 20140502
  15. LANSOPRAZOLE. [Concomitant]
     Active Substance: LANSOPRAZOLE
     Indication: GASTROOESOPHAGEAL REFLUX DISEASE
     Dosage: 1500 MICROGRAM
     Route: 048
     Dates: start: 20131220, end: 20140227
  16. LENADEX [Suspect]
     Active Substance: DEXAMETHASONE ACETATE
     Indication: PLASMA CELL MYELOMA
     Route: 048
     Dates: start: 20140131, end: 20140221
  17. METHYCOBAL [Concomitant]
     Active Substance: METHYLCOBALAMIN
     Indication: NEURALGIA
     Dosage: 200 MILLIGRAM
     Route: 048
     Dates: start: 20131220, end: 20140227

REACTIONS (5)
  - Delirium [Unknown]
  - Postoperative wound infection [Unknown]
  - Large intestine perforation [Recovered/Resolved]
  - Disseminated intravascular coagulation [Unknown]
  - Faecaloma [Unknown]

NARRATIVE: CASE EVENT DATE: 2014
